FAERS Safety Report 5389998-5 (Version None)
Quarter: 2007Q3

REPORT INFORMATION
  Report Type: 
  Country: None (occurrence: None)
  Receive Date: 20070718
  Receipt Date: 20070702
  Transmission Date: 20080115
  Serious: Yes (Disabling, Other)
  Sender: FDA-Public Use
  Company Number: HU-BAYER-200713999GDS

PATIENT
  Age: 38 Year
  Sex: Male
  Weight: 66 kg

DRUGS (2)
  1. AVELOX [Suspect]
     Indication: ACUTE SINUSITIS
     Dosage: TOTAL DAILY DOSE: 400 MG  UNIT DOSE: 400 MG
     Route: 048
     Dates: start: 20070204, end: 20070207
  2. AUGMENTIN '125' [Concomitant]
     Indication: ACUTE SINUSITIS
     Route: 065

REACTIONS (4)
  - ABDOMINAL PAIN [None]
  - FATIGUE [None]
  - MUSCULAR WEAKNESS [None]
  - TACHYCARDIA [None]
